FAERS Safety Report 13051729 (Version 2)
Quarter: 2016Q4

REPORT INFORMATION
  Report Type: Spontaneous
  Country: AU (occurrence: AU)
  Receive Date: 20161221
  Receipt Date: 20161221
  Transmission Date: 20170207
  Serious: Yes (Other)
  Sender: FDA-Public Use
  Company Number: ALCN2016AU009030

PATIENT
  Age: 72 Year
  Sex: Male

DRUGS (4)
  1. CYCLOPHOSPHAMIDE. [Suspect]
     Active Substance: CYCLOPHOSPHAMIDE
     Indication: SCLERITIS
     Dosage: 1 DF, BID
     Route: 048
  2. OFLOXACIN. [Suspect]
     Active Substance: OFLOXACIN
     Indication: KERATITIS FUNGAL
     Dosage: 1 DF, QH
     Route: 047
  3. DEXAMETHASONE. [Suspect]
     Active Substance: DEXAMETHASONE
     Indication: SCLERITIS
     Dosage: UNK
     Route: 047
  4. PREDNISONE. [Suspect]
     Active Substance: PREDNISONE
     Indication: SCLERITIS
     Dosage: 1 DF, QD
     Route: 048

REACTIONS (3)
  - Keratitis fungal [Unknown]
  - Product use issue [Unknown]
  - Endophthalmitis [Unknown]
